FAERS Safety Report 17735747 (Version 1)
Quarter: 2020Q2

REPORT INFORMATION
  Report Type: Report from Study
  Country: IT (occurrence: IT)
  Receive Date: 20200501
  Receipt Date: 20200501
  Transmission Date: 20200714
  Serious: Yes (Hospitalization)
  Sender: FDA-Public Use
  Company Number: IT-TEVA-2020-IT-1227788

PATIENT
  Age: 72 Year
  Sex: Female
  Weight: 52 kg

DRUGS (5)
  1. CARBOPLATINO TEVA 10 MG/ML [Suspect]
     Active Substance: CARBOPLATIN
     Indication: OVARIAN EPITHELIAL CANCER
     Route: 042
     Dates: start: 20191129, end: 20200403
  2. OMEPRAZOLO MYLAN GENERICS ITALIA 40 MG POLVERE PER SOLUZIONE PER INFUS [Concomitant]
  3. SOLDESAM [Concomitant]
     Active Substance: DEXAMETHASONE
  4. PACLITAXEL KABI 6 MG/ML CONCENTRATO PER SOLUZIONE PER INFUSIONE [Concomitant]
     Active Substance: PACLITAXEL
  5. ONDANSETRON B. BRAUN 2 MG/ML SOLUZIONE INIETTABILE O PER INFUSIONE [Concomitant]

REACTIONS (4)
  - Erythema [Recovered/Resolved]
  - Urticaria [Recovered/Resolved]
  - Pruritus [Recovered/Resolved]
  - Choking sensation [Recovered/Resolved]

NARRATIVE: CASE EVENT DATE: 20200403
